FAERS Safety Report 25943410 (Version 1)
Quarter: 2025Q4

REPORT INFORMATION
  Report Type: Spontaneous
  Country: EU (occurrence: EU)
  Receive Date: 20251021
  Receipt Date: 20251021
  Transmission Date: 20260118
  Serious: Yes (Hospitalization, Other)
  Sender: MERZ
  Company Number: EU-ROCHE-2141062

PATIENT

DRUGS (51)
  1. DALFAMPRIDINE [Suspect]
     Active Substance: DALFAMPRIDINE
     Indication: Gait disturbance
     Dosage: 1 DOSAGE FORM
     Route: 048
  2. DALFAMPRIDINE [Suspect]
     Active Substance: DALFAMPRIDINE
     Dosage: 1-0-1
     Route: 065
  3. DALFAMPRIDINE [Suspect]
     Active Substance: DALFAMPRIDINE
     Dosage: 1-0-1
     Route: 050
  4. TYSABRI [Suspect]
     Active Substance: NATALIZUMAB
     Indication: Product used for unknown indication
     Dosage: UNK
     Route: 065
  5. TYSABRI [Suspect]
     Active Substance: NATALIZUMAB
     Dosage: UNK
     Route: 050
  6. COMIRNATY (TOZINAMERAN) [Suspect]
     Active Substance: TOZINAMERAN
     Indication: COVID-19 immunisation
     Dosage: UNK
     Route: 050
     Dates: start: 20210610
  7. COMIRNATY (TOZINAMERAN) [Suspect]
     Active Substance: TOZINAMERAN
     Indication: COVID-19 prophylaxis
     Dosage: UNK
     Route: 050
     Dates: start: 20210529
  8. OCREVUS [Suspect]
     Active Substance: OCRELIZUMAB
     Indication: Relapsing-remitting multiple sclerosis
     Dosage: 600 MILLIGRAM
     Route: 042
  9. OCREVUS [Suspect]
     Active Substance: OCRELIZUMAB
     Dosage: 6TH INFUSION
     Route: 042
     Dates: start: 20180613
  10. OCREVUS [Suspect]
     Active Substance: OCRELIZUMAB
     Dosage: 300 MG (FREQUENCY NOT REPORTED) THEN 600 MG ONCE IN 210 DAYS
     Route: 042
     Dates: start: 20200722
  11. OCREVUS [Suspect]
     Active Substance: OCRELIZUMAB
     Dosage: 5TH INFUSION
     Route: 042
     Dates: start: 20200123
  12. OCREVUS [Suspect]
     Active Substance: OCRELIZUMAB
     Dosage: 600 MILLIGRAM
     Route: 042
  13. OCREVUS [Suspect]
     Active Substance: OCRELIZUMAB
     Dosage: 600 MILLIGRAM
     Route: 042
  14. OCREVUS [Suspect]
     Active Substance: OCRELIZUMAB
     Dosage: 6TH INFUSION
     Route: 042
     Dates: start: 20210113
  15. OCREVUS [Suspect]
     Active Substance: OCRELIZUMAB
     Dosage: UNK
     Route: 050
  16. OCREVUS [Suspect]
     Active Substance: OCRELIZUMAB
     Dosage: 600 MILLIGRAM
     Route: 050
  17. OCREVUS [Suspect]
     Active Substance: OCRELIZUMAB
     Dosage: UNK
     Route: 050
  18. OCREVUS [Suspect]
     Active Substance: OCRELIZUMAB
     Dosage: UNK
     Route: 050
  19. OCREVUS [Suspect]
     Active Substance: OCRELIZUMAB
     Dosage: 600 MILLIGRAM
     Route: 050
  20. OCREVUS [Suspect]
     Active Substance: OCRELIZUMAB
     Dosage: UNK
     Route: 050
  21. OCREVUS [Suspect]
     Active Substance: OCRELIZUMAB
     Dosage: UNK
     Route: 050
  22. OCREVUS [Suspect]
     Active Substance: OCRELIZUMAB
     Dosage: 920 MILLIGRAM
     Route: 058
     Dates: start: 20180613
  23. OCREVUS [Suspect]
     Active Substance: OCRELIZUMAB
     Dosage: 920 MILLIGRAM
     Route: 058
     Dates: start: 20250910
  24. CHOLECALCIFEROL [Concomitant]
     Active Substance: CHOLECALCIFEROL
     Indication: Product used for unknown indication
     Dosage: 20000 INTERNATIONAL UNIT, WEEKLY
     Route: 065
  25. CHOLECALCIFEROL [Concomitant]
     Active Substance: CHOLECALCIFEROL
     Route: 050
  26. MIRTAZAPINE [Concomitant]
     Active Substance: MIRTAZAPINE
     Indication: Product used for unknown indication
     Dosage: 3.75 MILLIGRAM
     Route: 065
  27. MIRTAZAPINE [Concomitant]
     Active Substance: MIRTAZAPINE
     Dosage: 3.75 MILLIGRAM
     Route: 050
  28. MIRTAZAPINE [Concomitant]
     Active Substance: MIRTAZAPINE
     Dosage: 0-0-1; EITHER 3.75 MG OR 1.875 MG
     Route: 050
  29. MIRTAZAPINE [Concomitant]
     Active Substance: MIRTAZAPINE
     Dosage: 0-0-1
     Route: 050
  30. MIRTAZAPINE [Concomitant]
     Active Substance: MIRTAZAPINE
     Dosage: 0-0-1
     Route: 050
  31. MIRTAZAPINE [Concomitant]
     Active Substance: MIRTAZAPINE
     Dosage: 0-0-1; EITHER 3.75 MG OR 1.875 MG
     Route: 050
  32. MIRTAZAPINE [Concomitant]
     Active Substance: MIRTAZAPINE
     Dosage: 0-0-1
     Route: 050
  33. MIRTAZAPINE [Concomitant]
     Active Substance: MIRTAZAPINE
     Dosage: 0-0-1
     Route: 050
  34. MIRTAZAPINE [Concomitant]
     Active Substance: MIRTAZAPINE
     Dosage: 0-0-1; EITHER 3.75 MG OR 1.875 MG
     Route: 050
  35. MIRTAZAPINE [Concomitant]
     Active Substance: MIRTAZAPINE
     Dosage: 0-0-1
     Route: 050
  36. MIRTAZAPINE [Concomitant]
     Active Substance: MIRTAZAPINE
     Dosage: 0-0-1
     Route: 050
  37. MIRTAZAPINE [Concomitant]
     Active Substance: MIRTAZAPINE
     Dosage: 0-0-1; EITHER 3.75 MG OR 1.875 MG
     Route: 050
  38. MIRTAZAPINE [Concomitant]
     Active Substance: MIRTAZAPINE
     Dosage: 0-0-1
     Route: 050
  39. MIRTAZAPINE [Concomitant]
     Active Substance: MIRTAZAPINE
     Dosage: 0-0-1
     Route: 050
  40. MIRTAZAPINE [Concomitant]
     Active Substance: MIRTAZAPINE
     Dosage: 0-0-1; EITHER 3.75 MG OR 1.875 MG
     Route: 050
  41. MIRTAZAPINE [Concomitant]
     Active Substance: MIRTAZAPINE
     Dosage: 0-0-1
     Route: 050
  42. MIRTAZAPINE [Concomitant]
     Active Substance: MIRTAZAPINE
     Dosage: 0-0-1
     Route: 050
  43. MIRTAZAPINE [Concomitant]
     Active Substance: MIRTAZAPINE
     Dosage: 0-0-1; EITHER 3.75 MG OR 1.875 MG
     Route: 050
  44. MIRTAZAPINE [Concomitant]
     Active Substance: MIRTAZAPINE
     Dosage: 0-0-1
     Route: 050
  45. MIRTAZAPINE [Concomitant]
     Active Substance: MIRTAZAPINE
     Dosage: 0-0-1
     Route: 050
  46. MIRTAZAPINE [Concomitant]
     Active Substance: MIRTAZAPINE
     Dosage: 0-0-1; EITHER 3.75 MG OR 1.875 MG
     Route: 050
  47. DIMETHINDENE [Concomitant]
     Active Substance: DIMETHINDENE
     Indication: Product used for unknown indication
     Dosage: UNK
     Route: 065
  48. DIMETHINDENE [Concomitant]
     Active Substance: DIMETHINDENE
     Route: 050
  49. PREDNISONE [Concomitant]
     Active Substance: PREDNISONE
     Indication: Product used for unknown indication
     Dosage: UNK
     Route: 065
  50. PREDNISONE [Concomitant]
     Active Substance: PREDNISONE
     Route: 050
  51. CHOLECALCIFEROL [Concomitant]
     Active Substance: CHOLECALCIFEROL
     Indication: Product used for unknown indication
     Dosage: 20000 INTERNATIONAL UNIT, WEEKLY
     Route: 065

REACTIONS (32)
  - Suicidal ideation [Recovered/Resolved]
  - Depressed mood [Recovered/Resolved]
  - Uterine prolapse [Recovered/Resolved]
  - Influenza [Recovered/Resolved]
  - Fluid retention [Recovered/Resolved]
  - Fear of falling [Recovered/Resolved]
  - Uhthoff^s phenomenon [Recovered/Resolved]
  - Gastrointestinal infection [Recovered/Resolved]
  - Gastrointestinal infection [Recovered/Resolved]
  - COVID-19 [Recovered/Resolved]
  - Agitation [Recovered/Resolved]
  - Limb discomfort [Recovered/Resolved]
  - Body temperature increased [Recovered/Resolved]
  - Dermal absorption impaired [Recovered/Resolved]
  - Hot flush [Recovered/Resolved]
  - Sluggishness [Recovered/Resolved]
  - Initial insomnia [Recovered/Resolved]
  - Feeling hot [Recovered/Resolved]
  - Cyst [Not Recovered/Not Resolved]
  - Apathy [Recovered/Resolved]
  - Paraesthesia [Recovered/Resolved]
  - Inflammation [Not Recovered/Not Resolved]
  - Injection site swelling [Recovered/Resolved]
  - Injection site pain [Recovered/Resolved]
  - Injection site erythema [Recovered/Resolved]
  - Fatigue [Recovered/Resolved]
  - Fatigue [Recovered/Resolved]
  - Fatigue [Recovered/Resolved]
  - Gait disturbance [Recovered/Resolved]
  - Gait disturbance [Not Recovered/Not Resolved]
  - Malaise [Recovered/Resolved]
  - Drug ineffective [Unknown]

NARRATIVE: CASE EVENT DATE: 20180613
